FAERS Safety Report 6314699-6 (Version None)
Quarter: 2009Q3

REPORT INFORMATION
  Report Type: 
  Country: None (occurrence: None)
  Receive Date: 20090819
  Receipt Date: 20090811
  Transmission Date: 20100115
  Serious: Yes (Other)
  Sender: FDA-Public Use
  Company Number: US-BAYER-200929613NA

PATIENT
  Age: 43 Year
  Sex: Female

DRUGS (4)
  1. MIRENA [Suspect]
     Indication: DRUG USE FOR UNKNOWN INDICATION
     Route: 015
     Dates: start: 20071101, end: 20080401
  2. BIOIDENTICAL ESTROGEN [Concomitant]
     Indication: DRUG USE FOR UNKNOWN INDICATION
  3. BIOIDENTICAL CORTISOL PILLS [Concomitant]
     Indication: DRUG USE FOR UNKNOWN INDICATION
  4. BIOIDENTICAL PROGESTERINE [Concomitant]

REACTIONS (14)
  - ALOPECIA [None]
  - ANXIETY [None]
  - AUTOIMMUNE DISORDER [None]
  - CHEMICAL POISONING [None]
  - CHRONIC FATIGUE SYNDROME [None]
  - DRY MOUTH [None]
  - DRY THROAT [None]
  - GASTROINTESTINAL CANDIDIASIS [None]
  - HOT FLUSH [None]
  - LYMPHADENOPATHY [None]
  - MUSCLE FATIGUE [None]
  - RENAL DISORDER [None]
  - TINNITUS [None]
  - TREMOR [None]
